FAERS Safety Report 5822812-X (Version None)
Quarter: 2008Q3

REPORT INFORMATION
  Report Type: 
  Country: None (occurrence: None)
  Receive Date: 20080725
  Receipt Date: 20080715
  Transmission Date: 20090109
  Serious: Yes (Other)
  Sender: FDA-Public Use
  Company Number: JP-ASTRAZENECA-2008AP03883

PATIENT
  Age: 1 Year
  Sex: Male

DRUGS (3)
  1. PULMICORT RESPULES [Suspect]
     Indication: ASTHMA
     Dosage: DOSE UNKNOWN
     Route: 055
     Dates: start: 20080101
  2. ONON [Concomitant]
     Dosage: DOSE UNKNOWN
     Route: 048
  3. CLARITHROMYCIN [Concomitant]
     Dosage: DOSE UNKNOWN
     Route: 048

REACTIONS (1)
  - WHITE BLOOD CELL COUNT INCREASED [None]
